FAERS Safety Report 11842403 (Version 1)
Quarter: 2015Q4

REPORT INFORMATION
  Report Type: Spontaneous
  Country: US (occurrence: US)
  Receive Date: 20151216
  Receipt Date: 20151216
  Transmission Date: 20160305
  Serious: No
  Sender: FDA-Public Use
  Company Number: US-RB-077670-15

PATIENT
  Sex: Male

DRUGS (3)
  1. DELSYM [Suspect]
     Active Substance: DEXTROMETHORPHAN
     Dosage: . PATIENT TOOK 1 DOSE AROUND 11:00AM.,FREQUENCY UNK
     Route: 065
     Dates: start: 20150512
  2. DELSYM [Suspect]
     Active Substance: DEXTROMETHORPHAN
     Indication: PRODUCT USED FOR UNKNOWN INDICATION
     Dosage: . PATIENT TOOK 1 CAPFULL 1 TIME AT NIGHT.,FREQUENCY UNK
     Route: 065
     Dates: start: 20150510
  3. DELSYM [Suspect]
     Active Substance: DEXTROMETHORPHAN
     Dosage: . ,QD
     Route: 065
     Dates: start: 20150511

REACTIONS (1)
  - Headache [Recovering/Resolving]

NARRATIVE: CASE EVENT DATE: 20150510
